FAERS Safety Report 9106676 (Version 3)
Quarter: 2013Q2

REPORT INFORMATION
  Report Type: Spontaneous
  Country: JP (occurrence: JP)
  Receive Date: 20130221
  Receipt Date: 20130401
  Transmission Date: 20140414
  Serious: Yes (Hospitalization)
  Sender: FDA-Public Use
  Company Number: JP-ROCHE-1191646

PATIENT
  Age: 56 Year
  Sex: Female
  Weight: 48 kg

DRUGS (3)
  1. TAMIFLU [Suspect]
     Indication: INFLUENZA
     Route: 048
     Dates: start: 20130204, end: 20130204
  2. MAO-TO [Suspect]
     Indication: PRODUCT USED FOR UNKNOWN INDICATION
     Dosage: DOSAGE IS UNCERTAIN
     Route: 048
     Dates: start: 20130204, end: 20130204
  3. ANYRUME [Concomitant]
     Dosage: DOSAGE IS UNCERTAIN. ?TAKEN AS NEEDED.
     Route: 048

REACTIONS (4)
  - Erythema nodosum [Recovering/Resolving]
  - Polyarthritis [Recovering/Resolving]
  - Rash [Unknown]
  - Neutrophil count increased [Recovered/Resolved]
